FAERS Safety Report 8335006 (Version 2)
Quarter: 2012Q4

REPORT INFORMATION
  Report Type: 
  Country: US (occurrence: None)
  Receive Date: 20120104
  Receipt Date: 20121210
  Transmission Date: 20130627
  Serious: Yes (Death)
  Sender: FDA-Public Use
  Company Number: DSA_48646_2011

PATIENT
  Age: 57 Year
  Sex: Female

DRUGS (9)
  1. DILTIAZEM HYDROCHLORIDE [Suspect]
     Indication: COMPLETED SUICIDE
     Dosage: (DF ORAL)
     Route: 048
  2. VENLAFAXINE [Suspect]
     Dosage: (DF ORAL)
     Route: 048
  3. ANTIMALARIALS [Suspect]
     Dosage: (DF ORAL)
     Route: 048
  4. METHOTREXATE [Suspect]
     Dosage: (DF ORAL)
     Route: 048
  5. CLONAZEPAM [Suspect]
     Dosage: (DF ORAL)
     Route: 048
  6. BACLOFEN [Suspect]
     Dosage: (DF ORAL)
     Route: 048
  7. FLUOXETINE [Suspect]
     Dosage: (DF ORAL)
     Route: 048
  8. DIPHENHYDRAMINE HYDROCHLORIDE [Suspect]
     Dosage: (DF Oral)
     Route: 048
  9. GABAPENTIN [Suspect]
     Dosage: (DF ORAL)
     Route: 048

REACTIONS (3)
  - Intentional drug misuse [None]
  - Completed suicide [None]
  - Intentional overdose [None]
